FAERS Safety Report 11198686 (Version 3)
Quarter: 2015Q3

REPORT INFORMATION
  Report Type: Spontaneous
  Country: US (occurrence: US)
  Receive Date: 20150618
  Receipt Date: 20150818
  Transmission Date: 20151125
  Serious: No
  Sender: FDA-Public Use
  Company Number: US-009507513-1506USA008099

PATIENT
  Age: 85 Year
  Sex: Male

DRUGS (2)
  1. BELSOMRA [Suspect]
     Active Substance: SUVOREXANT
     Dosage: 1.5 DF (ONE SUVOREXANT 10 MG PLUS HALF OF A SUVOREXANT 10 MG THUS A TOTAL OF 15 MG)
     Route: 048
     Dates: start: 20150611
  2. BELSOMRA [Suspect]
     Active Substance: SUVOREXANT
     Indication: INSOMNIA
     Dosage: 1 DF (1 PILL), ONCE, 3 UNIT OF USE BLSTRPACKS OF 10
     Route: 048
     Dates: start: 20150610, end: 20150610

REACTIONS (1)
  - Drug ineffective [Unknown]

NARRATIVE: CASE EVENT DATE: 20150610
